FAERS Safety Report 9650727 (Version 1)
Quarter: 2013Q4

REPORT INFORMATION
  Report Type: Spontaneous
  Country: KR (occurrence: KR)
  Receive Date: 20131029
  Receipt Date: 20131029
  Transmission Date: 20140711
  Serious: Yes (Hospitalization, Disabling, Other)
  Sender: FDA-Public Use
  Company Number: KR-BRISTOL-MYERS SQUIBB COMPANY-19602531

PATIENT
  Age: 42 Year
  Sex: Male

DRUGS (1)
  1. BARACLUDE [Suspect]
     Indication: HEPATITIS B
     Route: 048

REACTIONS (7)
  - Central nervous system lesion [Unknown]
  - Prostatic disorder [Unknown]
  - Dermatitis [Unknown]
  - Nausea [Unknown]
  - Palpitations [Unknown]
  - Chills [Unknown]
  - Syncope [Unknown]
